FAERS Safety Report 6453292-1 (Version None)
Quarter: 2009Q4

REPORT INFORMATION
  Report Type: 
  Country: None (occurrence: None)
  Receive Date: 20091123
  Receipt Date: 20091123
  Transmission Date: 20100525
  Serious: Yes (Life-Threatening, Other)
  Sender: FDA-Public Use
  Company Number: None

PATIENT
  Age: 25 Year
  Sex: Female
  Weight: 72.7 kg

DRUGS (1)
  1. CLINDAMYCIN [Suspect]
     Dosage: 500 MG EVERY 8 HRS
     Dates: start: 20091106, end: 20091109

REACTIONS (5)
  - CHEST DISCOMFORT [None]
  - CLOSTRIDIUM DIFFICILE COLITIS [None]
  - COLD SWEAT [None]
  - HEART RATE INCREASED [None]
  - MYDRIASIS [None]
